FAERS Safety Report 7432405-9 (Version None)
Quarter: 2011Q2

REPORT INFORMATION
  Report Type: 
  Country: None (occurrence: None)
  Receive Date: 20110422
  Receipt Date: 20110415
  Transmission Date: 20111010
  Serious: Yes (Other)
  Sender: FDA-Public Use
  Company Number: FR-PFIZER INC-2010182331

PATIENT
  Age: 6 Year
  Sex: Male
  Weight: 15.873 kg

DRUGS (3)
  1. PEDIATRIC ADVIL [Suspect]
     Dosage: UNK
     Route: 048
     Dates: start: 20010101
  2. PEDIATRIC ADVIL [Suspect]
     Indication: PYREXIA
     Dosage: UNK, PER WEIGHT
     Route: 048
     Dates: start: 20000101
  3. AUGMENTIN [Concomitant]
     Indication: OTITIS MEDIA ACUTE
     Dosage: PER WEIGHT DOSE 3 TIMES A DAY
     Route: 048
     Dates: start: 20000101

REACTIONS (2)
  - ANGIOEDEMA [None]
  - FACE OEDEMA [None]
